FAERS Safety Report 23362873 (Version 4)
Quarter: 2025Q1

REPORT INFORMATION
  Report Type: Report from Study
  Country: US (occurrence: US)
  Receive Date: 20240103
  Receipt Date: 20250113
  Transmission Date: 20250409
  Serious: Yes (Hospitalization)
  Sender: TAKEDA
  Company Number: US-TAKEDA-2022TUS052355

PATIENT
  Age: 52 Year
  Sex: Male
  Weight: 76 kg

DRUGS (27)
  1. TEDUGLUTIDE [Suspect]
     Active Substance: TEDUGLUTIDE
     Indication: Illness
     Dosage: 3.8 MILLIGRAM, QD
  2. TEDUGLUTIDE [Suspect]
     Active Substance: TEDUGLUTIDE
     Indication: Short-bowel syndrome
     Dosage: UNK UNK, QD
     Dates: start: 202202
  3. TEDUGLUTIDE [Suspect]
     Active Substance: TEDUGLUTIDE
     Dosage: 3.79 MILLIGRAM, QD
  4. TEDUGLUTIDE [Suspect]
     Active Substance: TEDUGLUTIDE
     Dosage: 0.38 MILLILITER, QD
  5. TEDUGLUTIDE [Suspect]
     Active Substance: TEDUGLUTIDE
     Dosage: 3.8 MILLIGRAM, QD
  6. TEDUGLUTIDE [Suspect]
     Active Substance: TEDUGLUTIDE
     Dosage: 0.38 MILLILITER, QD
  7. VITAMIN D2 [Concomitant]
     Active Substance: ERGOCALCIFEROL
  8. CARVEDILOL [Concomitant]
     Active Substance: CARVEDILOL
  9. PREVALITE [Concomitant]
     Active Substance: CHOLESTYRAMINE
  10. METHOCARBAMOL [Concomitant]
     Active Substance: METHOCARBAMOL
  11. CHOLESTYRAMINE [Concomitant]
     Active Substance: CHOLESTYRAMINE
  12. PERCOCET [Concomitant]
     Active Substance: ACETAMINOPHEN\OXYCODONE HYDROCHLORIDE
  13. ALOSETRON HYDROCHLORIDE [Concomitant]
     Active Substance: ALOSETRON HYDROCHLORIDE
  14. ENTRESTO [Concomitant]
     Active Substance: SACUBITRIL\VALSARTAN
  15. TESTOSTERONE CYPIONATE [Concomitant]
     Active Substance: TESTOSTERONE CYPIONATE
  16. VITAMIN B12 [Concomitant]
     Active Substance: CYANOCOBALAMIN
  17. OXYCODONE [Concomitant]
     Active Substance: OXYCODONE
  18. TESTOSTERONE [Concomitant]
     Active Substance: TESTOSTERONE
  19. SERTRALINE [Concomitant]
     Active Substance: SERTRALINE HYDROCHLORIDE
  20. ALOSETRON [Concomitant]
     Active Substance: ALOSETRON
  21. HYDROCORTISONE [Concomitant]
     Active Substance: HYDROCORTISONE
  22. NALOXONE [Concomitant]
     Active Substance: NALOXONE
  23. MAGNESIUM [Concomitant]
     Active Substance: MAGNESIUM
  24. ZOLOFT [Concomitant]
     Active Substance: SERTRALINE HYDROCHLORIDE
  25. SPIRONOLACTONE [Concomitant]
     Active Substance: SPIRONOLACTONE
  26. ZINC [Concomitant]
     Active Substance: ZINC
  27. CALCIUM [Concomitant]
     Active Substance: CALCIUM

REACTIONS (9)
  - Post procedural complication [Unknown]
  - Muscle spasms [Unknown]
  - Insurance issue [Unknown]
  - Product dose omission issue [Unknown]
  - Product use issue [Not Recovered/Not Resolved]
  - Product distribution issue [Unknown]
  - Appetite disorder [Unknown]
  - Anxiety [Unknown]
  - Decreased appetite [Recovered/Resolved with Sequelae]

NARRATIVE: CASE EVENT DATE: 20230801
